FAERS Safety Report 9948828 (Version 2)
Quarter: 2014Q1

REPORT INFORMATION
  Report Type: Spontaneous
  Country: RU (occurrence: RU)
  Receive Date: 20140304
  Receipt Date: 20140304
  Transmission Date: 20141002
  Serious: Yes (Other)
  Sender: FDA-Public Use
  Company Number: RU-009507513-1402RUS003319

PATIENT
  Sex: Female

DRUGS (1)
  1. IMPLANON [Suspect]
     Dosage: IT IS PATIENT^S FIRST IMPLANT
     Route: 059
     Dates: start: 20130731, end: 20140128

REACTIONS (6)
  - Polypectomy [Recovered/Resolved]
  - Aggression [Recovered/Resolved]
  - Depression [Recovered/Resolved]
  - Metrorrhagia [Recovered/Resolved]
  - Uterine cervical erosion [Unknown]
  - Cervical polyp [Recovered/Resolved]
